FAERS Safety Report 13865056 (Version 2)
Quarter: 2017Q3

REPORT INFORMATION
  Report Type: Spontaneous
  Country: IT (occurrence: IT)
  Receive Date: 20170814
  Receipt Date: 20170920
  Transmission Date: 20171127
  Serious: Yes (Other)
  Sender: FDA-Public Use
  Company Number: IT-009507513-1708ITA005896

PATIENT
  Age: 46 Year
  Sex: Female

DRUGS (1)
  1. RIZATRIPTAN MSD [Suspect]
     Active Substance: RIZATRIPTAN
     Indication: MIGRAINE
     Dosage: 10 MG AS NEEDED
     Route: 048
     Dates: start: 20170101, end: 20170601

REACTIONS (1)
  - Drug ineffective [Unknown]

NARRATIVE: CASE EVENT DATE: 20170110
